FAERS Safety Report 13069252 (Version 2)
Quarter: 2017Q1

REPORT INFORMATION
  Report Type: Spontaneous
  Country: US (occurrence: US)
  Receive Date: 20161228
  Receipt Date: 20170329
  Transmission Date: 20170428
  Serious: No
  Sender: FDA-Public Use
  Company Number: PHEH2016US033806

PATIENT
  Age: 49 Year
  Sex: Female

DRUGS (2)
  1. TAFINLAR [Suspect]
     Active Substance: DABRAFENIB MESYLATE
     Indication: CRANIOPHARYNGIOMA BENIGN
     Dosage: 2 DF, BID
     Route: 048
     Dates: start: 20160106
  2. MEKINIST [Suspect]
     Active Substance: TRAMETINIB DIMETHYL SULFOXIDE
     Indication: CRANIOPHARYNGIOMA BENIGN
     Dosage: 2 MG, QD
     Route: 048
     Dates: start: 20160106

REACTIONS (2)
  - Confusional state [Unknown]
  - Visual impairment [Unknown]

NARRATIVE: CASE EVENT DATE: 20161222
